FAERS Safety Report 6164960-3 (Version None)
Quarter: 2009Q2

REPORT INFORMATION
  Report Type: 
  Country: None (occurrence: None)
  Receive Date: 20090423
  Receipt Date: 20090306
  Transmission Date: 20091009
  Serious: No
  Sender: FDA-Public Use
  Company Number: US-BAYER-200914914NA

PATIENT
  Age: 42 Year
  Sex: Female

DRUGS (4)
  1. YAZ [Suspect]
     Indication: PROPHYLAXIS
     Route: 048
     Dates: start: 20070101, end: 20090101
  2. WELLBUTRIN [Concomitant]
     Indication: ANXIETY
     Route: 048
  3. EFFEXOR [Concomitant]
     Indication: ANXIETY
     Route: 048
  4. ATENOLOL [Concomitant]
     Indication: HEART RATE INCREASED
     Route: 048

REACTIONS (2)
  - DRUG WITHDRAWAL HEADACHE [None]
  - NO ADVERSE EVENT [None]
